FAERS Safety Report 18731367 (Version 6)
Quarter: 2021Q1

REPORT INFORMATION
  Report Type: Report from Study
  Country: CO (occurrence: CO)
  Receive Date: 20210112
  Receipt Date: 20210310
  Transmission Date: 20210419
  Serious: Yes (Hospitalization, Other)
  Sender: FDA-Public Use
  Company Number: CO-SEAGEN-2021SGN00078

PATIENT
  Age: 22 Year
  Sex: Female
  Weight: 68 kg

DRUGS (1)
  1. BRENTUXIMAB VEDOTIN [Suspect]
     Active Substance: BRENTUXIMAB VEDOTIN
     Indication: HODGKIN^S DISEASE
     Dosage: 125 MILLIGRAM, Q3WEEKS
     Route: 042
     Dates: start: 20190819

REACTIONS (6)
  - Pericardial effusion [Recovering/Resolving]
  - Dyspnoea [Recovered/Resolved]
  - Lymphadenopathy mediastinal [Unknown]
  - Hodgkin^s disease recurrent [Unknown]
  - Myocardial infarction [Recovering/Resolving]
  - Tachycardia [Recovered/Resolved]

NARRATIVE: CASE EVENT DATE: 20201231
